FAERS Safety Report 6888171-9 (Version None)
Quarter: 2010Q3

REPORT INFORMATION
  Report Type: 
  Country: None (occurrence: None)
  Receive Date: 20100708
  Receipt Date: 20091020
  Transmission Date: 20110219
  Serious: Yes (Other)
  Sender: FDA-Public Use
  Company Number: 2009287696

PATIENT
  Age: 56 Year
  Sex: Female
  Weight: 58 kg

DRUGS (10)
  1. CHANTIX [Suspect]
     Indication: SMOKING CESSATION THERAPY
     Dosage: 0.5 MG, 1X/DAY, ORAL
     Route: 048
     Dates: start: 20081223, end: 20081223
  2. EFEXOR XR (VENLAFAXINE) [Concomitant]
  3. METHADONE HCL [Concomitant]
  4. NAPROSYN [Concomitant]
  5. METHOCARBAMOL [Concomitant]
  6. WELLBUTRIN (IBUPROPION HYDROCHLORIDE) [Concomitant]
  7. GABAPENTIN [Concomitant]
  8. ALENDRONATE SODIUM [Concomitant]
  9. VITAMIN D [Concomitant]
  10. CALCIUM (CALCIUM) [Concomitant]

REACTIONS (2)
  - URTICARIA [None]
  - WEIGHT INCREASED [None]
